FAERS Safety Report 12439083 (Version 2)
Quarter: 2016Q3

REPORT INFORMATION
  Report Type: Spontaneous
  Country: JP (occurrence: JP)
  Receive Date: 20160606
  Receipt Date: 20160707
  Transmission Date: 20161109
  Serious: Yes (Hospitalization, Other)
  Sender: FDA-Public Use
  Company Number: JP-009507513-1606JPN002451

PATIENT
  Age: 1 Year
  Sex: Female
  Weight: 10.4 kg

DRUGS (10)
  1. TEMODAL [Suspect]
     Active Substance: TEMOZOLOMIDE
     Dosage: 50 MG, QD
     Route: 042
     Dates: start: 20130618, end: 20130622
  2. TEMODAL [Suspect]
     Active Substance: TEMOZOLOMIDE
     Dosage: 46 MG, QD
     Route: 042
     Dates: start: 20130416, end: 20130420
  3. IRINOTECAN HYDROCHLORIDE. [Suspect]
     Active Substance: IRINOTECAN HYDROCHLORIDE
     Indication: NEUROBLASTOMA
     Dosage: 6.4 MG, QD
     Route: 042
     Dates: start: 20130319, end: 20130323
  4. IRINOTECAN HYDROCHLORIDE. [Suspect]
     Active Substance: IRINOTECAN HYDROCHLORIDE
     Dosage: 10 MG, QD
     Route: 042
     Dates: start: 20130514, end: 20130518
  5. IRINOTECAN HYDROCHLORIDE. [Suspect]
     Active Substance: IRINOTECAN HYDROCHLORIDE
     Dosage: 10 MG, QD
     Route: 042
     Dates: start: 20130618, end: 20130622
  6. TEMODAL [Suspect]
     Active Substance: TEMOZOLOMIDE
     Indication: NEUROBLASTOMA
     Dosage: 30 MG, QD
     Route: 042
     Dates: start: 20130319, end: 20130323
  7. TEMODAL [Suspect]
     Active Substance: TEMOZOLOMIDE
     Dosage: 50 MG, QD
     Route: 042
     Dates: start: 20130514, end: 20130518
  8. TEMODAL [Suspect]
     Active Substance: TEMOZOLOMIDE
     Dosage: 50 MG, QD
     Route: 042
     Dates: start: 20130716, end: 20130720
  9. IRINOTECAN HYDROCHLORIDE. [Suspect]
     Active Substance: IRINOTECAN HYDROCHLORIDE
     Dosage: 9 MG, QD
     Route: 042
     Dates: start: 20130416, end: 20130420
  10. IRINOTECAN HYDROCHLORIDE. [Suspect]
     Active Substance: IRINOTECAN HYDROCHLORIDE
     Dosage: 10 MG, QD
     Route: 042
     Dates: start: 20130716, end: 20130720

REACTIONS (3)
  - Febrile neutropenia [Recovered/Resolved]
  - Febrile neutropenia [Recovered/Resolved]
  - Neutropenia [Recovered/Resolved]

NARRATIVE: CASE EVENT DATE: 20130603
